FAERS Safety Report 7234108-2 (Version None)
Quarter: 2011Q1

REPORT INFORMATION
  Report Type: 
  Country: None (occurrence: None)
  Receive Date: 20110119
  Receipt Date: 20110117
  Transmission Date: 20110831
  Serious: Yes (Other)
  Sender: FDA-Public Use
  Company Number: FR-ROXANE LABORATORIES, INC.-2011-RO-00068RO

PATIENT
  Age: 56 Year
  Sex: Male
  Weight: 75 kg

DRUGS (1)
  1. METHOTREXATE [Suspect]
     Indication: PROPHYLAXIS

REACTIONS (6)
  - PH URINE DECREASED [None]
  - PYREXIA [None]
  - DRUG CLEARANCE DECREASED [None]
  - RENAL FAILURE ACUTE [None]
  - ANAEMIA [None]
  - HYPERTENSION [None]
